FAERS Safety Report 15901545 (Version 1)
Quarter: 2019Q1

REPORT INFORMATION
  Report Type: Spontaneous
  Country: US (occurrence: US)
  Receive Date: 20190201
  Receipt Date: 20190201
  Transmission Date: 20190417
  Serious: Yes (Hospitalization)
  Sender: FDA-Public Use
  Company Number: None

PATIENT
  Sex: Male

DRUGS (19)
  1. ORENCIA [Suspect]
     Active Substance: ABATACEPT
     Indication: RHEUMATOID ARTHRITIS
     Dosage: ?          OTHER FREQUENCY:QW;?
     Route: 058
     Dates: start: 20180725
  2. FETZIMA [Concomitant]
     Active Substance: LEVOMILNACIPRAN HYDROCHLORIDE
  3. TRAMADOL. [Concomitant]
     Active Substance: TRAMADOL
  4. FUROSEMIDE. [Concomitant]
     Active Substance: FUROSEMIDE
  5. MELOXICAM. [Concomitant]
     Active Substance: MELOXICAM
  6. CARVEDILOL. [Concomitant]
     Active Substance: CARVEDILOL
  7. FOLIC ACID. [Concomitant]
     Active Substance: FOLIC ACID
  8. ULORIC [Concomitant]
     Active Substance: FEBUXOSTAT
  9. HUMALOG [Concomitant]
     Active Substance: INSULIN LISPRO
  10. PRAVASTATIN. [Concomitant]
     Active Substance: PRAVASTATIN
  11. LOSARTAN POT [Concomitant]
     Active Substance: LOSARTAN POTASSIUM
  12. COUMADIN [Concomitant]
     Active Substance: WARFARIN SODIUM
  13. RANITIDINE. [Concomitant]
     Active Substance: RANITIDINE
  14. CETIRIZINE [Concomitant]
     Active Substance: CETIRIZINE HYDROCHLORIDE
  15. ONE TOUCH [Concomitant]
     Active Substance: DEXTROSE
  16. POT CL- MICRO [Concomitant]
  17. AMLODIPINE [Concomitant]
     Active Substance: AMLODIPINE BESYLATE
  18. INSULIN [Concomitant]
     Active Substance: INSULIN NOS
  19. ZOLPIDEM [Concomitant]
     Active Substance: ZOLPIDEM\ZOLPIDEM TARTRATE

REACTIONS (5)
  - Pneumonia [None]
  - Liver abscess [None]
  - Rheumatoid arthritis [None]
  - Diabetes mellitus inadequate control [None]
  - Nausea [None]
